FAERS Safety Report 9333819 (Version 1)
Quarter: 2013Q2

REPORT INFORMATION
  Report Type: Spontaneous
  Country: NL (occurrence: NL)
  Receive Date: 20130606
  Receipt Date: 20130606
  Transmission Date: 20140414
  Serious: Yes (Death)
  Sender: FDA-Public Use
  Company Number: NL-INCYTE CORPORATION-2013IN001083

PATIENT
  Sex: 0

DRUGS (1)
  1. JAKAVI [Suspect]

REACTIONS (2)
  - General physical health deterioration [Fatal]
  - Dementia [Fatal]
